FAERS Safety Report 8803404 (Version 1)
Quarter: 2012Q4

REPORT INFORMATION
  Report Type: 
  Country: US (occurrence: US)
  Receive Date: 20120924
  Receipt Date: 20120924
  Transmission Date: 20130627
  Serious: No
  Sender: FDA-Public Use
  Company Number: US-B.I. PHARMACEUTICALS,INC./RIDGEFIELD-2012-BP-22868BP

PATIENT
  Age: 84 Year
  Sex: Male
  Weight: 109 kg

DRUGS (11)
  1. PRADAXA [Suspect]
     Indication: HEART RATE ABNORMAL
     Dosage: 300 mg
     Route: 048
     Dates: start: 20120906
  2. ACTOS [Concomitant]
     Indication: TYPE 2 DIABETES MELLITUS
     Dosage: 30 mg
     Route: 048
     Dates: start: 2008
  3. LASIX [Concomitant]
     Indication: FLUID RETENTION
     Dosage: 40 mg
     Route: 048
     Dates: start: 1990
  4. BACTRIM [Concomitant]
     Indication: ROSACEA
     Dosage: 1600 mg
     Route: 048
     Dates: start: 2007
  5. GLIPIZIDE [Concomitant]
     Indication: TYPE 2 DIABETES MELLITUS
     Dosage: 5 mg
     Route: 048
     Dates: start: 2008
  6. OMEPRAZOLE [Concomitant]
     Indication: GASTROOESOPHAGEAL REFLUX DISEASE
     Route: 048
     Dates: start: 2007
  7. CLONAZEPAM [Concomitant]
     Indication: SLEEP DISORDER
     Dosage: 1 mg
     Route: 048
     Dates: start: 2002
  8. ZOCOR [Concomitant]
     Indication: BLOOD CHOLESTEROL INCREASED
     Dosage: 40 mg
     Route: 048
     Dates: start: 2011
  9. TOPROL [Concomitant]
     Indication: CARDIAC DISORDER
     Dosage: 50 mg
     Route: 048
     Dates: start: 2002
  10. TOPROL [Concomitant]
     Indication: HYPERTENSION
  11. ASPIRIN [Concomitant]
     Indication: COAGULOPATHY
     Dosage: 81 mg
     Route: 048
     Dates: start: 2007

REACTIONS (2)
  - Cardiac disorder [Not Recovered/Not Resolved]
  - Asthenia [Recovered/Resolved]
